FAERS Safety Report 5771806-1 (Version None)
Quarter: 2008Q2

REPORT INFORMATION
  Report Type: 
  Country: None (occurrence: None)
  Receive Date: 20080601
  Receipt Date: 20080228
  Transmission Date: 20081010
  Serious: No
  Sender: FDA-Public Use
  Company Number: US200802006940

PATIENT
  Age: 59 Year
  Sex: Female
  Weight: 123.4 kg

DRUGS (9)
  1. BYETTA [Suspect]
     Indication: TYPE 2 DIABETES MELLITUS
     Dosage: 10 UG, 2/D, SUBCUTANEOUS ; 10 UG, 2/D, SUBCUTANEOUS
     Route: 058
     Dates: start: 20050101, end: 20050101
  2. BYETTA [Suspect]
     Indication: TYPE 2 DIABETES MELLITUS
     Dosage: 10 UG, 2/D, SUBCUTANEOUS ; 10 UG, 2/D, SUBCUTANEOUS
     Route: 058
     Dates: start: 20080128
  3. BYETTA [Suspect]
     Dosage: 10 UG, 2/D, SUBCUTANEOUS
     Route: 058
     Dates: start: 20080128
  4. AMARYL [Concomitant]
  5. GLUCOPHAGE [Concomitant]
  6. ACTOS /USA/ (PIOGLITAZONE HYDROCHLORIDE) [Concomitant]
  7. VITAMIN TAB [Concomitant]
  8. CALCIUM W/VITAMIN D /00944201/ (CALCIUM CARBONATE, COLECALCIFEROL) [Concomitant]
  9. ARIMIDEX [Concomitant]

REACTIONS (2)
  - INJECTION SITE URTICARIA [None]
  - WEIGHT INCREASED [None]
